FAERS Safety Report 11123166 (Version 5)
Quarter: 2015Q2

REPORT INFORMATION
  Report Type: Spontaneous
  Country: US (occurrence: US)
  Receive Date: 20150519
  Receipt Date: 20150629
  Transmission Date: 20150821
  Serious: Yes (Hospitalization)
  Sender: FDA-Public Use
  Company Number: US-UNITED THERAPEUTICS-UNT-2015-005765

PATIENT
  Age: 1 Month
  Sex: Female
  Weight: 2.49 kg

DRUGS (4)
  1. REMODULIN [Suspect]
     Active Substance: TREPROSTINIL
     Dosage: 0.03535 ?G/KG, CONTINUING
     Route: 058
     Dates: start: 20150430
  2. REMODULIN [Suspect]
     Active Substance: TREPROSTINIL
     Indication: PULMONARY HYPERTENSION
     Dosage: 0.03535 ?G/KG, CONTINUING
     Route: 058
     Dates: start: 20150404
  3. REMODULIN [Suspect]
     Active Substance: TREPROSTINIL
     Dosage: 0.03535 ?G/KG, CONTINUING
     Route: 058
     Dates: start: 20150501
  4. REMODULIN [Suspect]
     Active Substance: TREPROSTINIL
     Dosage: 0.03535 ?G/KG, CONTINUING
     Route: 058
     Dates: start: 20150408

REACTIONS (3)
  - Post procedural complication [Not Recovered/Not Resolved]
  - Infusion site haemorrhage [Recovered/Resolved]
  - Diaphragmatic hernia [Recovered/Resolved]

NARRATIVE: CASE EVENT DATE: 20150510
